FAERS Safety Report 11627597 (Version 2)
Quarter: 2015Q4

REPORT INFORMATION
  Report Type: Report from Study
  Country: DK (occurrence: DK)
  Receive Date: 20151014
  Receipt Date: 20151127
  Transmission Date: 20160304
  Serious: Yes (Other)
  Sender: FDA-Public Use
  Company Number: DK-ROCHE-1645033

PATIENT
  Age: 57 Year
  Sex: Male

DRUGS (6)
  1. RITUXIMAB [Suspect]
     Active Substance: RITUXIMAB
     Indication: B-CELL LYMPHOMA
     Dosage: LAST DATE OF RITUXIMAB BEFORE START OF AE THYROID CANCER: 17/JAN/2014
     Route: 042
     Dates: start: 20131204, end: 20140117
  2. PREDNISONE. [Suspect]
     Active Substance: PREDNISONE
     Indication: B-CELL LYMPHOMA
     Dosage: LAST DATE OF PREDNISONE BEFORE START OF AE THYROID CANCER: 17/JAN/2014
     Route: 048
     Dates: start: 20131214, end: 20140121
  3. VINCRISTINE [Suspect]
     Active Substance: VINCRISTINE
     Indication: B-CELL LYMPHOMA
     Dosage: LAST DATE OF VINCRISTINE BEFORE START OF AE THYROID CANCER: 17/JAN/2014
     Route: 042
     Dates: start: 20131214, end: 20140117
  4. CYCLOPHOSPHAMIDE. [Suspect]
     Active Substance: CYCLOPHOSPHAMIDE
     Indication: B-CELL LYMPHOMA
     Dosage: LAST DATE OF CYCLOPHOSPHAMIDE BEFORE START OF AE THYROID CANCER: 17/JAN/2014
     Route: 042
     Dates: start: 20131204, end: 20140117
  5. DOXORUBICIN [Suspect]
     Active Substance: DOXORUBICIN
     Indication: B-CELL LYMPHOMA
     Dosage: LAST DATE OF DOXORUBICIN BEFORE START OF AE THYROID CANCER: 17/JAN/2014
     Route: 042
     Dates: start: 20131214, end: 20140117
  6. METFORMIN [Concomitant]
     Active Substance: METFORMIN HYDROCHLORIDE
     Indication: DIABETES MELLITUS
     Route: 048
     Dates: start: 20131031

REACTIONS (1)
  - Papillary thyroid cancer [Recovered/Resolved]

NARRATIVE: CASE EVENT DATE: 20140218
